FAERS Safety Report 9858839 (Version 1)
Quarter: 2014Q1

REPORT INFORMATION
  Report Type: Report from Study
  Country: US (occurrence: US)
  Receive Date: 20140131
  Receipt Date: 20140131
  Transmission Date: 20141002
  Serious: Yes (Other)
  Sender: FDA-Public Use
  Company Number: US-ABBVIE-14P-163-1195610-00

PATIENT
  Age: 68 Year
  Sex: Female
  Weight: 59.02 kg

DRUGS (17)
  1. NIASPAN (COATED) [Suspect]
     Indication: BLOOD CHOLESTEROL INCREASED
  2. NIASPAN (COATED) [Suspect]
     Indication: BLOOD TRIGLYCERIDES INCREASED
  3. CREON [Concomitant]
     Indication: PANCREATITIS
  4. ATORVASTATIN [Concomitant]
     Indication: BLOOD CHOLESTEROL INCREASED
  5. FENOFIBRATE [Concomitant]
     Indication: BLOOD TRIGLYCERIDES INCREASED
  6. BENAZOPRIL [Concomitant]
     Indication: HYPERTENSION
  7. MELOXICAM [Concomitant]
     Indication: OSTEOARTHRITIS
  8. CREON [Concomitant]
     Indication: PANCREATITIS
  9. GABAPENTIN [Concomitant]
     Indication: DYSPEPSIA
  10. CLONAZEPAM [Concomitant]
     Indication: ANXIETY
  11. VESICARE [Concomitant]
     Indication: BLADDER DISORDER
  12. AMLODIPINE [Concomitant]
     Indication: HYPERTENSION
  13. ATENOLOL [Concomitant]
     Indication: HYPERTENSION
  14. AZELASTINE [Concomitant]
     Indication: HYPERSENSITIVITY
  15. INSULIN [Concomitant]
     Indication: DIABETES MELLITUS
  16. AMITIZA [Concomitant]
     Indication: DYSPEPSIA
  17. MIRALAX [Concomitant]
     Indication: CONSTIPATION

REACTIONS (11)
  - Hypoglycaemia [Recovered/Resolved]
  - Deafness [Recovering/Resolving]
  - Tympanic membrane perforation [Recovered/Resolved]
  - Benign middle ear neoplasm [Recovered/Resolved]
  - Loss of consciousness [Recovered/Resolved]
  - Ear pain [Recovered/Resolved]
  - Ear infection [Unknown]
  - Flushing [Not Recovered/Not Resolved]
  - Osteoarthritis [Not Recovered/Not Resolved]
  - Sinusitis [Recovered/Resolved]
  - Hypoglycaemia [Not Recovered/Not Resolved]
